FAERS Safety Report 21884768 (Version 3)
Quarter: 2023Q2

REPORT INFORMATION
  Report Type: Spontaneous
  Country: JP (occurrence: JP)
  Receive Date: 20230119
  Receipt Date: 20230622
  Transmission Date: 20230721
  Serious: Yes (Hospitalization, Other)
  Sender: FDA-Public Use
  Company Number: JP-PFIZER INC-PV202300009642

PATIENT
  Age: 9 Decade
  Sex: Male
  Weight: 58 kg

DRUGS (4)
  1. BEVACIZUMAB [Suspect]
     Active Substance: BEVACIZUMAB
     Indication: Hepatocellular carcinoma
     Dosage: 900 MG
  2. SORAFENIB [Suspect]
     Active Substance: SORAFENIB
     Indication: Hepatocellular carcinoma
     Dosage: 200 MG, DAILY
     Dates: start: 2016
  3. SORAFENIB [Suspect]
     Active Substance: SORAFENIB
     Dosage: 400 MG (ON DAY 25)
  4. ATEZOLIZUMAB [Suspect]
     Active Substance: ATEZOLIZUMAB
     Indication: Hepatocellular carcinoma
     Dosage: 1200 MG

REACTIONS (2)
  - Skin ulcer [Unknown]
  - Off label use [Unknown]
